FAERS Safety Report 5407060-X (Version None)
Quarter: 2007Q3

REPORT INFORMATION
  Report Type: 
  Country: None (occurrence: None)
  Receive Date: 20070802
  Receipt Date: 20070709
  Transmission Date: 20080115
  Serious: Yes (Other)
  Sender: FDA-Public Use
  Company Number: 07H-167-0312867-00

PATIENT
  Age: 55 Year
  Sex: Female
  Weight: 60 kg

DRUGS (11)
  1. PROPOFOL [Suspect]
     Indication: INDUCTION OF ANAESTHESIA
     Dosage: 150 MG,NOT REPORTED
     Dates: start: 20060601
  2. PROPOFOL [Suspect]
     Indication: GENERAL ANAESTHESIA
     Dosage: NOT REPORTED, NOT REPORTED, INTRAVENOUS
     Route: 042
     Dates: start: 20050701
  3. ALFENTANIL [Suspect]
     Indication: GENERAL ANAESTHESIA
     Dosage: 0.5 MG, NOT REPORTED, INTRAVENOUS
     Route: 042
     Dates: start: 20050701
  4. FENTANYL [Suspect]
     Indication: GENERAL ANAESTHESIA
     Dosage: 0.1 MG, NOT REPORTED
     Dates: start: 20050701
  5. GABAPENTIN [Suspect]
     Indication: NEURALGIA
     Dosage: 600 MG, 3 IN 1 D, NOT REPORTED
  6. ISOFLURANE [Suspect]
     Indication: MAINTENANCE OF ANAESTHESIA
     Dates: start: 20060601
  7. DEXAMETHASONE TAB [Concomitant]
  8. ACETAMINOPHEN [Concomitant]
  9. CODEINE PHOSPHATE (CODEINE PHOSPHATE) [Concomitant]
  10. OXYGEN (OXYGEN) [Concomitant]
  11. COMPRESSED AIR [Concomitant]

REACTIONS (4)
  - DELAYED RECOVERY FROM ANAESTHESIA [None]
  - DRUG INTERACTION [None]
  - DYSTONIA [None]
  - MYOCLONUS [None]
